FAERS Safety Report 15937749 (Version 1)
Quarter: 2019Q1

REPORT INFORMATION
  Report Type: Spontaneous
  Country: US (occurrence: US)
  Receive Date: 20190208
  Receipt Date: 20190208
  Transmission Date: 20190417
  Serious: No
  Sender: FDA-Public Use
  Company Number: US-AEGERION PHARMACEUTICAL, INC-AEGR003823

PATIENT
  Sex: Male
  Weight: 81.63 kg

DRUGS (1)
  1. MYALEPT [Suspect]
     Active Substance: METRELEPTIN
     Indication: LIPODYSTROPHY ACQUIRED
     Dosage: 4.6 MG, QD
     Route: 058

REACTIONS (2)
  - Blood triglycerides increased [Unknown]
  - Weight fluctuation [Unknown]
